FAERS Safety Report 19660543 (Version 1)
Quarter: 2021Q3

REPORT INFORMATION
  Report Type: Spontaneous
  Country: US (occurrence: US)
  Receive Date: 20210804
  Receipt Date: 20210804
  Transmission Date: 20211014
  Serious: Yes (Hospitalization)
  Sender: FDA-Public Use
  Company Number: None

PATIENT
  Age: 74 Year
  Sex: Male

DRUGS (1)
  1. POMALYST [Suspect]
     Active Substance: POMALIDOMIDE
     Indication: PLASMA CELL MYELOMA
     Route: 048
     Dates: start: 20201110

REACTIONS (7)
  - Pyrexia [None]
  - Diarrhoea [None]
  - Pancytopenia [None]
  - Confusional state [None]
  - Rash [None]
  - Therapy interrupted [None]
  - Febrile neutropenia [None]

NARRATIVE: CASE EVENT DATE: 20210721
